FAERS Safety Report 8928956 (Version 5)
Quarter: 2013Q1

REPORT INFORMATION
  Report Type: Report from Study
  Country: CZ (occurrence: CZ)
  Receive Date: 20121128
  Receipt Date: 20130219
  Transmission Date: 20140127
  Serious: Yes (Hospitalization)
  Sender: FDA-Public Use
  Company Number: CZ-SHIRE-ALL1-2012-05750

PATIENT
  Age: 44 Year
  Sex: Female
  Weight: 90.2 kg

DRUGS (3)
  1. 489 (LISDEXAMFETAMINE DIMESYLATE) [Suspect]
     Indication: DEPRESSION
     Dosage: 30 MG, 1X/DAY:QD (30 MG OED)
     Route: 048
     Dates: start: 20121027, end: 20121122
  2. DULOXETINE HYDROCHLORIDE [Suspect]
     Indication: ANTIDEPRESSANT THERAPY
     Dosage: 60 MG, 1X/DAY:QD
     Route: 065
     Dates: start: 20120831
  3. IBALGIN                            /00109201/ [Concomitant]
     Indication: BACK PAIN
     Dosage: UNK, AS REQ^D
     Route: 065

REACTIONS (1)
  - Accelerated hypertension [Recovered/Resolved]
